FAERS Safety Report 6213918-4 (Version None)
Quarter: 2009Q2

REPORT INFORMATION
  Report Type: 
  Country: None (occurrence: None)
  Receive Date: 20090604
  Receipt Date: 20090601
  Transmission Date: 20091009
  Serious: Yes (Other)
  Sender: FDA-Public Use
  Company Number: US-SP-2009-01675

PATIENT
  Age: 25 Year
  Sex: Female

DRUGS (2)
  1. TUBERSOL [Suspect]
     Indication: TUBERCULIN TEST
     Route: 023
     Dates: start: 20090420
  2. TUBERSOL [Suspect]
     Route: 023
     Dates: start: 20090420

REACTIONS (6)
  - BLOOD PRESSURE INCREASED [None]
  - DYSPNOEA [None]
  - INJECTION SITE INDURATION [None]
  - PALPITATIONS [None]
  - PRURITUS [None]
  - RASH [None]
